FAERS Safety Report 10518994 (Version 1)
Quarter: 2014Q4

REPORT INFORMATION
  Report Type: Spontaneous
  Country: US (occurrence: None)
  Receive Date: 20141014
  Receipt Date: 20141014
  Transmission Date: 20150528
  Serious: Yes (Hospitalization)
  Sender: FDA-Public Use
  Company Number: None

PATIENT
  Age: 50 Year
  Sex: Female
  Weight: 73.94 kg

DRUGS (6)
  1. METFORMIN [Concomitant]
     Active Substance: METFORMIN HYDROCHLORIDE
  2. ROSUVASTATIN [Concomitant]
     Active Substance: ROSUVASTATIN
  3. CANAGLIFLOZIN [Suspect]
     Active Substance: CANAGLIFLOZIN
     Indication: DIABETES MELLITUS INADEQUATE CONTROL
     Dosage: 1 PILL QD ORAL
     Route: 048
     Dates: start: 20140813, end: 20140819
  4. SITAGLIPTIN [Concomitant]
     Active Substance: SITAGLIPTIN
  5. SYNTHROID [Concomitant]
     Active Substance: LEVOTHYROXINE SODIUM
  6. VITAMINS [Concomitant]
     Active Substance: VITAMINS

REACTIONS (7)
  - Nausea [None]
  - Vomiting [None]
  - Abdominal pain [None]
  - Ketoacidosis [None]
  - Glycosuria [None]
  - Starvation [None]
  - Drug effect prolonged [None]

NARRATIVE: CASE EVENT DATE: 20140819
